FAERS Safety Report 16072751 (Version 1)
Quarter: 2019Q1

REPORT INFORMATION
  Report Type: Report from Study
  Country: FR (occurrence: FR)
  Receive Date: 20190314
  Receipt Date: 20190314
  Transmission Date: 20190418
  Serious: Yes (Other)
  Sender: FDA-Public Use
  Company Number: FR-ELI_LILLY_AND_COMPANY-FR201903006520

PATIENT
  Age: 58 Year
  Sex: Male

DRUGS (6)
  1. 5-FU [FLUOROURACIL] [Concomitant]
     Active Substance: FLUOROURACIL
     Indication: SQUAMOUS CELL CARCINOMA OF HEAD AND NECK
     Dosage: 3800 MG, UNK
     Route: 042
     Dates: start: 20121008, end: 20121029
  2. CETUXIMAB. [Suspect]
     Active Substance: CETUXIMAB
     Indication: SQUAMOUS CELL CARCINOMA OF HEAD AND NECK
     Dosage: 630 MG, WEEKLY (1/W)
     Route: 042
     Dates: start: 20121002
  3. 5-FU [FLUOROURACIL] [Concomitant]
     Active Substance: FLUOROURACIL
     Dosage: 3800 MG, UNK
     Route: 042
     Dates: start: 20121123, end: 20121124
  4. CARBOPLATIN. [Concomitant]
     Active Substance: CARBOPLATIN
     Dosage: 440 MG, UNK
     Route: 042
     Dates: start: 20121123, end: 20121124
  5. CETUXIMAB. [Suspect]
     Active Substance: CETUXIMAB
     Dosage: 400 MG, WEEKLY (1/W)
     Route: 042
     Dates: end: 20121112
  6. CARBOPLATIN. [Concomitant]
     Active Substance: CARBOPLATIN
     Indication: SQUAMOUS CELL CARCINOMA OF HEAD AND NECK
     Dosage: 440 MG, UNK
     Route: 042
     Dates: start: 20121008, end: 20121029

REACTIONS (6)
  - Dysphagia [Recovered/Resolved]
  - Hypophagia [Recovered/Resolved]
  - Dermatitis [Recovered/Resolved]
  - Aspiration [Recovered/Resolved]
  - Pharyngeal inflammation [Recovered/Resolved]
  - Weight decreased [Recovered/Resolved]

NARRATIVE: CASE EVENT DATE: 201211
